FAERS Safety Report 5235594-X (Version None)
Quarter: 2007Q1

REPORT INFORMATION
  Report Type: 
  Country: None (occurrence: None)
  Receive Date: 20070208
  Receipt Date: 20070208
  Transmission Date: 20070707
  Serious: Yes (Life-Threatening, Hospitalization, Disabling, Other)
  Sender: FDA-Public Use
  Company Number: None

PATIENT
  Age: 77 Year
  Sex: Female
  Weight: 58.0604 kg

DRUGS (3)
  1. GABAPENTIN [Suspect]
     Indication: EPILEPSY
     Dosage: 1 CAPSULE 2XADAY PO
     Route: 048
     Dates: start: 20070124, end: 20070128
  2. CLOPIDOGREL [Suspect]
     Indication: CEREBROVASCULAR ACCIDENT
     Dosage: 1TABLET DAILY PO
     Route: 048
     Dates: start: 20070124, end: 20070128
  3. CLOPIDOGREL [Suspect]
     Indication: MYOCARDIAL INFARCTION
     Dosage: 1TABLET DAILY PO
     Route: 048
     Dates: start: 20070124, end: 20070128

REACTIONS (3)
  - CEREBRAL HAEMORRHAGE [None]
  - DIALYSIS [None]
  - HYPOGLYCAEMIC UNCONSCIOUSNESS [None]
